FAERS Safety Report 7916772-5 (Version None)
Quarter: 2011Q4

REPORT INFORMATION
  Report Type: 
  Country: None (occurrence: None)
  Receive Date: 20111116
  Receipt Date: 20111107
  Transmission Date: 20120403
  Serious: Yes (Other)
  Sender: FDA-Public Use
  Company Number: US-ELI_LILLY_AND_COMPANY-US201111002557

PATIENT
  Age: 54 Year
  Sex: Female

DRUGS (2)
  1. HUMALOG [Suspect]
     Indication: DIABETES MELLITUS
     Dosage: UNK, UNKNOWN
     Route: 058
     Dates: start: 19990101
  2. SYNTHROID [Concomitant]
     Dosage: UNK

REACTIONS (4)
  - SENSITISATION [None]
  - THYROID DISORDER [None]
  - HALLUCINATION [None]
  - BLOOD GLUCOSE DECREASED [None]
